FAERS Safety Report 9478182 (Version 1)
Quarter: 2013Q3

REPORT INFORMATION
  Report Type: Spontaneous
  Country: US (occurrence: US)
  Receive Date: 20130827
  Receipt Date: 20130827
  Transmission Date: 20140515
  Serious: Yes (Death)
  Sender: FDA-Public Use
  Company Number: US-PFIZER INC-2013242942

PATIENT
  Age: 73 Year
  Sex: Female

DRUGS (1)
  1. VFEND [Suspect]
     Dosage: 200 MG/DAY
     Dates: start: 20120628

REACTIONS (1)
  - Acute myeloid leukaemia [Fatal]
